FAERS Safety Report 26192732 (Version 1)
Quarter: 2025Q4

REPORT INFORMATION
  Report Type: Spontaneous
  Country: CA (occurrence: CA)
  Receive Date: 20251223
  Receipt Date: 20251223
  Transmission Date: 20260118
  Serious: Yes (Death, Life-Threatening, Hospitalization, Disabling, Other)
  Sender: FRESENIUS KABI
  Company Number: CA-FreseniusKabi-FK202517298

PATIENT
  Age: 80 Year
  Sex: Male

DRUGS (26)
  1. HYDROMORPHONE HYDROCHLORIDE [Suspect]
     Active Substance: HYDROMORPHONE HYDROCHLORIDE
     Indication: Product used for unknown indication
     Dosage: 1 EVERY 1 DAYS
     Route: 058
  2. HYDROMORPHONE HYDROCHLORIDE [Suspect]
     Active Substance: HYDROMORPHONE HYDROCHLORIDE
     Indication: Analgesic therapy
     Route: 058
  3. HYDROMORPHONE HYDROCHLORIDE [Suspect]
     Active Substance: HYDROMORPHONE HYDROCHLORIDE
     Route: 058
  4. HYDROMORPHONE HYDROCHLORIDE [Suspect]
     Active Substance: HYDROMORPHONE HYDROCHLORIDE
     Dosage: ROA-UNKNOWN
  5. HYDROMORPHONE HYDROCHLORIDE [Suspect]
     Active Substance: HYDROMORPHONE HYDROCHLORIDE
     Route: 058
  6. HYDROMORPHONE HYDROCHLORIDE [Suspect]
     Active Substance: HYDROMORPHONE HYDROCHLORIDE
     Route: 058
  7. HYDROMORPHONE HYDROCHLORIDE [Suspect]
     Active Substance: HYDROMORPHONE HYDROCHLORIDE
     Dosage: ROA-UNKNOWN
  8. HYDROMORPHONE HYDROCHLORIDE [Suspect]
     Active Substance: HYDROMORPHONE HYDROCHLORIDE
     Route: 058
  9. CEFTRIAXONE SODIUM [Suspect]
     Active Substance: CEFTRIAXONE SODIUM
     Indication: Product used for unknown indication
     Dosage: 1 EVERY 1 DAY
     Route: 042
  10. CEFTRIAXONE SODIUM [Suspect]
     Active Substance: CEFTRIAXONE SODIUM
     Indication: Bacterial infection
     Dosage: 1 EVERY 1 DAY
     Route: 042
  11. CEFTRIAXONE SODIUM [Suspect]
     Active Substance: CEFTRIAXONE SODIUM
     Dosage: ROA-UNKNOWN
  12. CEFTRIAXONE SODIUM [Suspect]
     Active Substance: CEFTRIAXONE SODIUM
     Dosage: ROA-UNKNOWN
  13. FLUTICASONE [Suspect]
     Active Substance: FLUTICASONE
     Indication: Product used for unknown indication
     Dosage: ROA-UNKNOWN
  14. ALBUTEROL [Suspect]
     Active Substance: ALBUTEROL
     Indication: Product used for unknown indication
     Dosage: FOA-UNKNOWN?ROA-UNKNOWN
  15. ALBUTEROL [Suspect]
     Active Substance: ALBUTEROL
     Indication: Chronic obstructive pulmonary disease
     Dosage: FOA-UNKNOWN
     Route: 055
  16. ALBUTEROL [Suspect]
     Active Substance: ALBUTEROL
     Dosage: FOA-UNKNOWN?ROA-UNKNOWN
  17. ALBUTEROL [Suspect]
     Active Substance: ALBUTEROL
     Dosage: FOA-UNKNOWN?ROA-UNKNOWN
  18. ALBUTEROL [Suspect]
     Active Substance: ALBUTEROL
     Dosage: ROA-UNKNOWN
     Route: 055
  19. ALBUTEROL [Suspect]
     Active Substance: ALBUTEROL
     Dosage: FOA-NOT SPECIFIED
     Route: 055
  20. ALBUTEROL [Suspect]
     Active Substance: ALBUTEROL
     Dosage: ROA-UNKNOWN
     Route: 055
  21. THEOPHYLLINE [Suspect]
     Active Substance: THEOPHYLLINE
     Indication: Product used for unknown indication
     Dosage: TABLET
  22. THEOPHYLLINE [Suspect]
     Active Substance: THEOPHYLLINE
     Indication: Off label use
     Dosage: TABLET
  23. THEOPHYLLINE [Suspect]
     Active Substance: THEOPHYLLINE
     Indication: Intentional product misuse
     Dosage: TABLET
  24. THEOPHYLLINE [Suspect]
     Active Substance: THEOPHYLLINE
     Dosage: TABLET
  25. THEOPHYLLINE [Suspect]
     Active Substance: THEOPHYLLINE
     Dosage: TABLET
  26. THEOPHYLLINE [Suspect]
     Active Substance: THEOPHYLLINE
     Dosage: NOT SPECIFIED

REACTIONS (1)
  - Hypophosphataemia [Fatal]
